FAERS Safety Report 8137572-X (Version None)
Quarter: 2012Q1

REPORT INFORMATION
  Report Type: 
  Country: None (occurrence: None)
  Receive Date: 20120215
  Receipt Date: 20120210
  Transmission Date: 20120608
  Serious: No
  Sender: FDA-Public Use
  Company Number: US-PFIZER INC-2012037262

PATIENT
  Sex: Female
  Weight: 70.3 kg

DRUGS (2)
  1. ATARAX [Concomitant]
     Indication: ANXIETY
     Dosage: UNK
     Dates: end: 20110101
  2. DEPO-PROVERA [Suspect]
     Indication: CONTRACEPTION
     Dosage: UNK
     Dates: start: 20110125

REACTIONS (10)
  - ALOPECIA [None]
  - WEIGHT FLUCTUATION [None]
  - BINGE EATING [None]
  - IRRITABILITY [None]
  - ABDOMINAL PAIN [None]
  - DEPRESSION [None]
  - STRESS [None]
  - MENORRHAGIA [None]
  - ABNORMAL BEHAVIOUR [None]
  - FATIGUE [None]
